FAERS Safety Report 21799142 (Version 2)
Quarter: 2023Q1

REPORT INFORMATION
  Report Type: Spontaneous
  Country: FR (occurrence: FR)
  Receive Date: 20221230
  Receipt Date: 20230113
  Transmission Date: 20230418
  Serious: Yes (Other)
  Sender: FDA-Public Use
  Company Number: FR-PFM-2022-09083

PATIENT

DRUGS (6)
  1. NERLYNX [Suspect]
     Active Substance: NERATINIB
     Indication: Breast cancer
     Dosage: 6 DF PER DAY
     Route: 065
     Dates: start: 20221015, end: 2022
  2. NERLYNX [Suspect]
     Active Substance: NERATINIB
     Dosage: 4 DF PER DAY (160 MG/DAY)
     Route: 065
     Dates: start: 2022
  3. LETROZOLE [Concomitant]
     Active Substance: LETROZOLE
     Indication: Product used for unknown indication
     Dosage: UNK
     Route: 065
  4. METHOTREXATE [Concomitant]
     Active Substance: METHOTREXATE
     Indication: Product used for unknown indication
     Dosage: UNK
     Route: 065
  5. LOPERAMIDE [Concomitant]
     Active Substance: LOPERAMIDE
     Indication: Product used for unknown indication
     Dosage: UNK
     Route: 065
  6. CHOLECALCIFEROL [Concomitant]
     Active Substance: CHOLECALCIFEROL
     Indication: Product used for unknown indication
     Dosage: UNK (PUNCTUAL INTAKE)
     Route: 065

REACTIONS (3)
  - Asthenia [Recovered/Resolved]
  - Nausea [Recovered/Resolved]
  - Vomiting [Recovered/Resolved]

NARRATIVE: CASE EVENT DATE: 20221020
